FAERS Safety Report 5243659-1 (Version None)
Quarter: 2007Q1

REPORT INFORMATION
  Report Type: 
  Country: None (occurrence: None)
  Receive Date: 20070222
  Receipt Date: 20070214
  Transmission Date: 20070707
  Serious: Yes (Other)
  Sender: FDA-Public Use
  Company Number: HQWYE738215FEB07

PATIENT
  Sex: Female

DRUGS (2)
  1. PREMPRO [Suspect]
     Indication: HORMONE REPLACEMENT THERAPY
     Route: 048
     Dates: start: 20031101, end: 20061031
  2. LOTREL [Concomitant]
     Dosage: UNKNOWN
     Route: 065

REACTIONS (1)
  - COLON CANCER [None]
